FAERS Safety Report 5724932-7 (Version None)
Quarter: 2008Q2

REPORT INFORMATION
  Report Type: 
  Country: None (occurrence: None)
  Receive Date: 20080501
  Receipt Date: 20080425
  Transmission Date: 20081010
  Serious: Yes (Other)
  Sender: FDA-Public Use
  Company Number: CH-WYE-G01462608

PATIENT
  Age: 58 Year
  Sex: Male

DRUGS (3)
  1. EFFEXOR [Suspect]
     Indication: DEPRESSION
     Route: 048
     Dates: start: 20080107
  2. ACETYLSALICYLIC ACID SRT [Concomitant]
     Indication: CARDIAC ARREST
     Route: 048
     Dates: start: 20000919
  3. ZOCOR [Concomitant]
     Indication: CARDIAC ARREST
     Route: 048
     Dates: start: 20000917

REACTIONS (3)
  - AGGRESSION [None]
  - ANTIDEPRESSANT DRUG LEVEL ABOVE THERAPEUTIC [None]
  - ELECTROENCEPHALOGRAM ABNORMAL [None]
